FAERS Safety Report 18316081 (Version 1)
Quarter: 2020Q3

REPORT INFORMATION
  Report Type: Spontaneous
  Country: DE (occurrence: DE)
  Receive Date: 20200927
  Receipt Date: 20200927
  Transmission Date: 20201103
  Serious: Yes (Life-Threatening, Hospitalization)
  Sender: FDA-Public Use
  Company Number: DE-TEVA-2020-DE-1831400

PATIENT
  Age: 75 Year
  Sex: Male

DRUGS (6)
  1. TORASEMID [Suspect]
     Active Substance: TORSEMIDE
     Dosage: NK MG, NK
     Route: 065
  2. OLMESARTAN [Suspect]
     Active Substance: OLMESARTAN
     Dosage: 20 MILLIGRAM DAILY;  1?0?1?0
  3. METFORMIN [Suspect]
     Active Substance: METFORMIN HYDROCHLORIDE
     Dosage: 1000 MILLIGRAM DAILY;  1?0?0?0
  4. AMLODIPIN [Concomitant]
     Active Substance: AMLODIPINE BESYLATE
     Dosage: 10 MILLIGRAM DAILY;  1?0?1?0
  5. METOPROLOL. [Concomitant]
     Active Substance: METOPROLOL
     Dosage: 100 MILLIGRAM DAILY;  1?0?1?0
  6. APIXABAN [Concomitant]
     Active Substance: APIXABAN
     Dosage: 10 MILLIGRAM DAILY; 1?0?1?0

REACTIONS (3)
  - General physical health deterioration [Unknown]
  - Hyperglycaemia [Unknown]
  - Condition aggravated [Unknown]
